FAERS Safety Report 9891526 (Version 2)
Quarter: 2014Q3

REPORT INFORMATION
  Report Type: Spontaneous
  Country: US (occurrence: US)
  Receive Date: 20140212
  Receipt Date: 20140804
  Transmission Date: 20150326
  Serious: Yes (Other)
  Sender: FDA-Public Use
  Company Number: US-THROMBOGENICS INC.-JET-2013-291

PATIENT
  Age: 53 Year
  Sex: Female

DRUGS (1)
  1. JETREA [Suspect]
     Active Substance: OCRIPLASMIN
     Indication: VITREOUS ADHESIONS
     Dosage: 0.125 MG, ONE TIME DOSE
     Route: 031
     Dates: start: 2013, end: 2013

REACTIONS (2)
  - Retinal oedema [Unknown]
  - Retinal detachment [Unknown]
